FAERS Safety Report 6688992-1 (Version None)
Quarter: 2010Q2

REPORT INFORMATION
  Report Type: 
  Country: None (occurrence: None)
  Receive Date: 20100420
  Receipt Date: 20100409
  Transmission Date: 20101027
  Serious: Yes (Other)
  Sender: FDA-Public Use
  Company Number: PHHY2010BE06938

PATIENT
  Sex: Male

DRUGS (3)
  1. ZOMETA [Suspect]
     Indication: RENAL CANCER
     Dosage: 4 MG, QMO
     Dates: start: 20090601
  2. CORTICOSTEROIDS [Concomitant]
     Dosage: UNK
     Dates: start: 20090601
  3. SUTENT [Concomitant]
     Dosage: UNK
     Dates: start: 20090801

REACTIONS (6)
  - APHTHOUS STOMATITIS [None]
  - BONE DISORDER [None]
  - METASTASES TO BONE [None]
  - METASTASES TO CENTRAL NERVOUS SYSTEM [None]
  - OSTEONECROSIS [None]
  - PAIN [None]
